FAERS Safety Report 4638673-0 (Version None)
Quarter: 2005Q2

REPORT INFORMATION
  Report Type: 
  Country: None (occurrence: None)
  Receive Date: 20050419
  Receipt Date: 20040625
  Transmission Date: 20051028
  Serious: Yes (Other)
  Sender: FDA-Public Use
  Company Number: PHFR2004GB02625

PATIENT
  Age: 48 Year
  Sex: Female

DRUGS (10)
  1. CLOZARIL [Suspect]
     Indication: SCHIZOPHRENIA
     Route: 048
     Dates: start: 20040507, end: 20040531
  2. CLOZARIL [Suspect]
     Dosage: 250 MG/DAY
     Route: 048
     Dates: start: 20050212
  3. VALPROATE SODIUM [Concomitant]
     Indication: SCHIZOPHRENIA
     Dosage: 1400 MG/DAY
     Route: 048
  4. VALPROATE SODIUM [Concomitant]
     Dosage: 800 MG, BID
     Route: 048
  5. CLONAZEPAM [Concomitant]
     Indication: SCHIZOPHRENIA
     Dosage: 1 MG, BID
     Route: 048
  6. LACTULOSE [Concomitant]
     Indication: CONSTIPATION
     Route: 048
  7. METFORMIN HCL [Concomitant]
     Indication: DIABETES MELLITUS
     Dosage: 1500 MG/DAY
     Route: 048
  8. OXYBUTYNIN [Concomitant]
     Indication: INCONTINENCE
     Dosage: 10 MG/DAY
     Route: 048
  9. OMEPRAZOLE [Concomitant]
     Indication: DYSPEPSIA
     Dosage: 10 MG/DAY
     Route: 048
  10. ENALAPRIL [Concomitant]
     Indication: HYPERTENSION
     Dosage: 7.5 MG/DAY
     Route: 048

REACTIONS (29)
  - ABDOMINAL PAIN [None]
  - BLOOD CREATINE PHOSPHOKINASE INCREASED [None]
  - BLOOD GLUCOSE INCREASED [None]
  - C-REACTIVE PROTEIN INCREASED [None]
  - CIRCULATORY COLLAPSE [None]
  - COGNITIVE DISORDER [None]
  - CONSTIPATION [None]
  - DIABETES MELLITUS [None]
  - DIARRHOEA [None]
  - DIFFICULTY IN WALKING [None]
  - DISORIENTATION [None]
  - DIZZINESS [None]
  - DYSARTHRIA [None]
  - FAECAL INCONTINENCE [None]
  - GAIT DISTURBANCE [None]
  - GASTROENTERITIS VIRAL [None]
  - GLYCOSURIA [None]
  - GRAND MAL CONVULSION [None]
  - HYPERTENSION [None]
  - INFECTION [None]
  - LABILE BLOOD PRESSURE [None]
  - OXYGEN SATURATION DECREASED [None]
  - PYREXIA [None]
  - SINUS TACHYCARDIA [None]
  - SYNCOPE [None]
  - SYNCOPE VASOVAGAL [None]
  - TACHYCARDIA [None]
  - URINARY TRACT INFECTION [None]
  - WHITE BLOOD CELL COUNT INCREASED [None]
